FAERS Safety Report 6179950-4 (Version None)
Quarter: 2009Q2

REPORT INFORMATION
  Report Type: 
  Country: None (occurrence: None)
  Receive Date: 20090505
  Receipt Date: 20090427
  Transmission Date: 20091009
  Serious: Yes (Other)
  Sender: FDA-Public Use
  Company Number: PHEH2009US02040

PATIENT
  Sex: Female

DRUGS (6)
  1. VIVELLE-DOT [Suspect]
     Dosage: 0.025 MG
     Route: 062
     Dates: start: 20080801
  2. CALCIUM W/VITAMIN D NOS [Concomitant]
     Dosage: 500 UNK, TID
     Route: 048
  3. ASPIRIN [Concomitant]
     Dosage: 81 UNK, QD
     Route: 048
  4. SYNTHROID [Concomitant]
     Dosage: 81 UNK, QOD
     Route: 048
  5. ESTRACE [Concomitant]
     Dosage: 0.01 %, QOD
     Route: 067
  6. PROMETRIUM [Concomitant]
     Dosage: 100 MG, QD
     Route: 048

REACTIONS (5)
  - AGGRESSION [None]
  - HOMICIDAL IDEATION [None]
  - HORMONE LEVEL ABNORMAL [None]
  - HOT FLUSH [None]
  - MOOD SWINGS [None]
